FAERS Safety Report 20591406 (Version 1)
Quarter: 2022Q1

REPORT INFORMATION
  Report Type: Report from Study
  Country: US (occurrence: US)
  Receive Date: 20220314
  Receipt Date: 20220314
  Transmission Date: 20220423
  Serious: Yes (Death)
  Sender: FDA-Public Use
  Company Number: US-NOVARTISPH-NVSC2022US059100

PATIENT
  Age: 69 Year
  Sex: Male

DRUGS (2)
  1. FILGRASTIM [Suspect]
     Active Substance: FILGRASTIM
     Indication: Product used for unknown indication
     Dosage: 300 MG/KG, Q2W (ONCE EVERY TWO WEEKS) (300MCG/0.5ML IV 14 DAYS ON/14 DAYS OFF)
     Route: 058
     Dates: start: 20201111, end: 20220128
  2. FILGRASTIM [Suspect]
     Active Substance: FILGRASTIM
     Dosage: 300MCG/ .05ML IV 14 DAYS ON 14DAYS OFF
     Route: 042

REACTIONS (1)
  - Death [Fatal]

NARRATIVE: CASE EVENT DATE: 20220311
